FAERS Safety Report 23519102 (Version 1)
Quarter: 2024Q1

REPORT INFORMATION
  Report Type: Spontaneous
  Country: US (occurrence: US)
  Receive Date: 20240213
  Receipt Date: 20240213
  Transmission Date: 20240410
  Serious: Yes (Other)
  Sender: FDA-Public Use
  Company Number: US-ASTELLAS-2024US004095

PATIENT

DRUGS (5)
  1. IZERVAY [Suspect]
     Active Substance: AVACINCAPTAD PEGOL SODIUM
     Indication: Dry age-related macular degeneration
     Dosage: 2 MG, UNKNOWN FREQ. (2ND INJECTION) (UNKNOWN EYE)
     Route: 065
  2. IZERVAY [Suspect]
     Active Substance: AVACINCAPTAD PEGOL SODIUM
     Indication: Dry age-related macular degeneration
     Dosage: 2 MG, UNKNOWN FREQ. (2ND INJECTION) (UNKNOWN EYE)
     Route: 065
  3. IZERVAY [Suspect]
     Active Substance: AVACINCAPTAD PEGOL SODIUM
     Indication: Dry age-related macular degeneration
     Dosage: 2 MG, UNKNOWN FREQ. (2ND INJECTION) (UNKNOWN EYE)
     Route: 065
  4. IZERVAY [Suspect]
     Active Substance: AVACINCAPTAD PEGOL SODIUM
     Indication: Dry age-related macular degeneration
     Dosage: 2 MG, UNKNOWN FREQ. (2ND INJECTION) (UNKNOWN EYE)
     Route: 065
  5. IZERVAY [Suspect]
     Active Substance: AVACINCAPTAD PEGOL SODIUM
     Indication: Dry age-related macular degeneration
     Dosage: 2 MG, UNKNOWN FREQ. (2ND INJECTION) (UNKNOWN EYE)
     Route: 065

REACTIONS (3)
  - Non-infectious endophthalmitis [Unknown]
  - Discomfort [Unknown]
  - Injection site reaction [Unknown]
